FAERS Safety Report 4430815-5 (Version None)
Quarter: 2004Q3

REPORT INFORMATION
  Report Type: 
  Country: None (occurrence: None)
  Receive Date: 20040823
  Receipt Date: 20040615
  Transmission Date: 20050211
  Serious: Yes (Hospitalization, Other)
  Sender: FDA-Public Use
  Company Number: PHFR2004GB02489

PATIENT
  Age: 42 Year
  Sex: Female

DRUGS (10)
  1. CLOZARIL [Suspect]
     Dosage: 250MG MANE/300MG/NOCTE
     Route: 048
     Dates: start: 20010122
  2. DIAZEPAM [Concomitant]
     Dosage: 15MG/DAY
     Route: 048
  3. DANAZOL [Concomitant]
     Dosage: 200MG/DAY
     Route: 048
  4. GAMOLENIC ACID [Concomitant]
     Dosage: 240MG/DAY
     Route: 048
  5. VENLAFAXINE HCL [Concomitant]
     Dosage: 150MG/DAY
     Route: 048
  6. IBUPROFEN [Concomitant]
     Dosage: 1600MG
     Route: 048
  7. FRUSEMIDE [Concomitant]
     Dosage: 40MG/DAY
     Route: 048
  8. BECLOMETHASONE DIPROPIONATE [Concomitant]
     Dosage: 2 PUFFS
  9. VALPROATE SODIUM [Concomitant]
     Route: 065
  10. ENOXAPARIN SODIUM [Concomitant]
     Route: 065

REACTIONS (6)
  - CEREBROVASCULAR ACCIDENT [None]
  - MYOCARDIAL INFARCTION [None]
  - OBESITY [None]
  - PNEUMONIA [None]
  - TREATMENT NONCOMPLIANCE [None]
  - WEIGHT INCREASED [None]
